FAERS Safety Report 9194080 (Version 1)
Quarter: 2013Q1

REPORT INFORMATION
  Report Type: Spontaneous
  Country: ES (occurrence: ES)
  Receive Date: 20130327
  Receipt Date: 20130327
  Transmission Date: 20140127
  Serious: Yes (Hospitalization)
  Sender: FDA-Public Use
  Company Number: ES-ELI_LILLY_AND_COMPANY-ES201303007434

PATIENT
  Sex: Female

DRUGS (3)
  1. FORSTEO [Suspect]
     Indication: OSTEOPOROSIS
     Dosage: 20 UG, UNKNOWN
     Route: 058
     Dates: start: 200804, end: 20090427
  2. ACETYLCYSTEIN [Concomitant]
     Indication: SINUSITIS
     Dosage: UNK, UNKNOWN
     Route: 065
  3. CARDYL [Concomitant]
     Indication: BLOOD CHOLESTEROL ABNORMAL
     Dosage: UNK, UNKNOWN
     Route: 065

REACTIONS (2)
  - Femur fracture [Recovering/Resolving]
  - Impaired healing [Unknown]
